FAERS Safety Report 18689051 (Version 1)
Quarter: 2020Q4

REPORT INFORMATION
  Report Type: Spontaneous
  Country: JP (occurrence: JP)
  Receive Date: 20201231
  Receipt Date: 20201231
  Transmission Date: 20210114
  Serious: Yes (Hospitalization)
  Sender: FDA-Public Use
  Company Number: JP-STRIDES ARCOLAB LIMITED-2020SP016525

PATIENT
  Age: 74 Year
  Sex: Female

DRUGS (1)
  1. PREDNISOLONE. [Suspect]
     Active Substance: PREDNISOLONE
     Indication: INTERSTITIAL LUNG DISEASE
     Dosage: UNK
     Route: 048

REACTIONS (1)
  - Gallbladder rupture [Recovered/Resolved]
